FAERS Safety Report 8824440 (Version 3)
Quarter: 2013Q1

REPORT INFORMATION
  Report Type: Spontaneous
  Country: US (occurrence: US)
  Receive Date: 20121004
  Receipt Date: 20130114
  Transmission Date: 20140127
  Serious: Yes (Hospitalization)
  Sender: FDA-Public Use
  Company Number: US-BAYER-2012-102034

PATIENT
  Age: 28 Year
  Sex: Female
  Weight: 64.13 kg

DRUGS (6)
  1. YASMIN [Suspect]
     Indication: ENDOMETRIOSIS
     Dosage: UNK
     Dates: start: 20040417, end: 20040517
  2. YAZ [Suspect]
  3. OCELLA [Suspect]
  4. SYNTHROID [Concomitant]
     Indication: HYPOTHYROIDISM
  5. PERCOCET [Concomitant]
  6. PROTONIX [Concomitant]

REACTIONS (9)
  - Pulmonary embolism [None]
  - Pleuritic pain [None]
  - Dyspnoea [None]
  - Injury [None]
  - General physical health deterioration [None]
  - Emotional distress [None]
  - Pain [None]
  - Anxiety [None]
  - Off label use [None]
